FAERS Safety Report 8623456-7 (Version None)
Quarter: 2012Q3

REPORT INFORMATION
  Report Type: 
  Country: None (occurrence: None)
  Receive Date: 20120824
  Receipt Date: 20120824
  Transmission Date: 20120928
  Serious: Yes (Other)
  Sender: FDA-Public Use
  Company Number: None

PATIENT
  Sex: Male
  Weight: 99.7913 kg

DRUGS (1)
  1. LOTENSIN [Suspect]
     Indication: HYPERTENSION
     Dosage: TAKE ONE CAPSULE BY MOUTH IN THE MORNING
     Route: 048
     Dates: start: 20111005

REACTIONS (1)
  - ANGIOEDEMA [None]
